FAERS Safety Report 24258016 (Version 1)
Quarter: 2024Q3

REPORT INFORMATION
  Report Type: Report from Study
  Country: US (occurrence: US)
  Receive Date: 20240828
  Receipt Date: 20240828
  Transmission Date: 20241017
  Serious: Yes (Other)
  Sender: ABBVIE
  Company Number: US-ABBVIE-5896393

PATIENT
  Sex: Male

DRUGS (1)
  1. RINVOQ [Suspect]
     Active Substance: UPADACITINIB
     Indication: Crohn^s disease
     Route: 048
     Dates: start: 20240612, end: 20240812

REACTIONS (2)
  - Colectomy [Recovering/Resolving]
  - Appendicitis perforated [Recovering/Resolving]

NARRATIVE: CASE EVENT DATE: 20240101
